FAERS Safety Report 17295766 (Version 1)
Quarter: 2020Q1

REPORT INFORMATION
  Report Type: Spontaneous
  Country: US (occurrence: US)
  Receive Date: 20200121
  Receipt Date: 20200121
  Transmission Date: 20200409
  Serious: No
  Sender: FDA-Public Use
  Company Number: US-LNK INTERNATIONAL, INC.-2079249

PATIENT
  Sex: Male

DRUGS (1)
  1. NIGHTTIME SLEEP AID (DOXYLAMINE SUCCINATE) [Suspect]
     Active Substance: DOXYLAMINE SUCCINATE

REACTIONS (2)
  - Hangover [None]
  - Headache [None]
